FAERS Safety Report 11673582 (Version 1)
Quarter: 2015Q4

REPORT INFORMATION
  Report Type: Spontaneous
  Country: US (occurrence: US)
  Receive Date: 20151027
  Receipt Date: 20151027
  Transmission Date: 20160304
  Serious: No
  Sender: FDA-Public Use
  Company Number: US-ELI_LILLY_AND_COMPANY-US201006000573

PATIENT
  Sex: Female

DRUGS (20)
  1. CALCIUM [Concomitant]
     Active Substance: CALCIUM
  2. VITAMIN D [Concomitant]
     Active Substance: CHOLECALCIFEROL
  3. LIDODERM [Concomitant]
     Active Substance: LIDOCAINE
  4. MELATONIN [Concomitant]
     Active Substance: MELATONIN
  5. MULTIVITAMINS [Concomitant]
     Active Substance: VITAMINS
     Dosage: 1 D/F, UNK
  6. CLONAZEPAM. [Concomitant]
     Active Substance: CLONAZEPAM
  7. VITAMIN A [Concomitant]
     Active Substance: VITAMIN A
  8. IBUPROFEN. [Concomitant]
     Active Substance: IBUPROFEN
  9. ULTRACET [Concomitant]
     Active Substance: ACETAMINOPHEN\TRAMADOL HYDROCHLORIDE
  10. METHOTREXATE [Concomitant]
     Active Substance: METHOTREXATE
  11. NEXIUM [Concomitant]
     Active Substance: ESOMEPRAZOLE MAGNESIUM
  12. IRON [Concomitant]
     Active Substance: IRON
  13. ULTRAM [Concomitant]
     Active Substance: TRAMADOL HYDROCHLORIDE
  14. FORTEO [Suspect]
     Active Substance: TERIPARATIDE
     Indication: OSTEOPOROSIS
     Dosage: 20 UG, DAILY (1/D)
  15. FORTEO [Suspect]
     Active Substance: TERIPARATIDE
     Dosage: 20 UG, DAILY (1/D)
  16. GLUCOSAMINE SULFATE W/CHONDROITIN [Concomitant]
  17. FOLIC ACID. [Concomitant]
     Active Substance: FOLIC ACID
  18. FORTEO [Suspect]
     Active Substance: TERIPARATIDE
     Dosage: 20 UG, DAILY (1/D)
  19. SYNTHROID [Concomitant]
     Active Substance: LEVOTHYROXINE SODIUM
  20. FLAXSEED [Concomitant]
     Active Substance: FLAX SEED

REACTIONS (21)
  - Musculoskeletal disorder [Not Recovered/Not Resolved]
  - Musculoskeletal discomfort [Unknown]
  - Myalgia [Unknown]
  - Mass [Unknown]
  - Neck pain [Recovering/Resolving]
  - Arthropathy [Unknown]
  - Injection site erythema [Unknown]
  - Off label use [Recovered/Resolved]
  - Pain in extremity [Unknown]
  - Musculoskeletal pain [Unknown]
  - Fatigue [Recovering/Resolving]
  - Pain [Recovering/Resolving]
  - Arthralgia [Recovering/Resolving]
  - Intentional device misuse [Recovered/Resolved]
  - Injection site bruising [Unknown]
  - Rheumatoid arthritis [Unknown]
  - Ligament rupture [Unknown]
  - Limb discomfort [Unknown]
  - Discomfort [Recovering/Resolving]
  - Injection site pain [Unknown]
  - Constipation [Recovering/Resolving]
